FAERS Safety Report 6064193-5 (Version None)
Quarter: 2009Q1

REPORT INFORMATION
  Report Type: 
  Country: None (occurrence: None)
  Receive Date: 20090204
  Receipt Date: 20090126
  Transmission Date: 20090719
  Serious: Yes (Hospitalization)
  Sender: FDA-Public Use
  Company Number: US-BRISTOL-MYERS SQUIBB COMPANY-14484638

PATIENT
  Age: 64 Year
  Sex: Male
  Weight: 55 kg

DRUGS (4)
  1. CETUXIMAB [Suspect]
     Indication: HEAD AND NECK CANCER
     Dosage: CYCLES 4/5. CONTINUING
     Route: 042
     Dates: start: 20080909
  2. HYDREA [Suspect]
     Indication: HEAD AND NECK CANCER
     Dosage: THERAPY START AND STOP 1-18 TO 23-09. CYCLES 4/5.
     Route: 048
     Dates: start: 20090118, end: 20090123
  3. FLUOROURACIL [Suspect]
     Indication: HEAD AND NECK CANCER
     Dosage: THERAPY START AND STOP 1-18 TO 23-09. CYCLES 4/5, 5 DAYS.
     Route: 042
     Dates: start: 20090118, end: 20090123
  4. RADIATION THERAPY [Suspect]
     Indication: HEAD AND NECK CANCER
     Dosage: THERAPY START AND STOP 1-18 TO 23-09. CYCLES 4/5.

REACTIONS (1)
  - PNEUMONIA [None]
